FAERS Safety Report 22529158 (Version 1)
Quarter: 2023Q2

REPORT INFORMATION
  Report Type: Spontaneous
  Country: KR (occurrence: KR)
  Receive Date: 20230607
  Receipt Date: 20230607
  Transmission Date: 20230721
  Serious: Yes (Hospitalization)
  Sender: FDA-Public Use
  Company Number: KR-ORGANON-O2305KOR003305

PATIENT
  Age: 67 Year
  Sex: Male

DRUGS (4)
  1. COZAAR [Suspect]
     Active Substance: LOSARTAN POTASSIUM
     Indication: Product used for unknown indication
     Dosage: 1 FORMULATION
     Dates: start: 2010, end: 20210705
  2. COZAAR [Suspect]
     Active Substance: LOSARTAN POTASSIUM
     Dosage: 1 FORMULATION
     Dates: start: 20210708
  3. NAFTOPIDIL [Suspect]
     Active Substance: NAFTOPIDIL
     Indication: Lower urinary tract symptoms
     Dosage: 1 FORMULATION
     Dates: start: 20210413, end: 20210713
  4. ATORVASTATIN CALCIUM [Concomitant]
     Active Substance: ATORVASTATIN CALCIUM
     Indication: Product used for unknown indication
     Dosage: 1 FORMULATION
     Dates: start: 2010

REACTIONS (1)
  - Rotator cuff syndrome [Recovered/Resolved]

NARRATIVE: CASE EVENT DATE: 20210704
